FAERS Safety Report 13194872 (Version 3)
Quarter: 2017Q1

REPORT INFORMATION
  Report Type: Report from Study
  Country: US (occurrence: US)
  Receive Date: 20170207
  Receipt Date: 20170221
  Transmission Date: 20170428
  Serious: Yes (Hospitalization, Other)
  Sender: FDA-Public Use
  Company Number: US-GILEAD-2017-0256625

PATIENT
  Age: 55 Year
  Sex: Male

DRUGS (1)
  1. RANOLAZINE [Suspect]
     Active Substance: RANOLAZINE
     Indication: ANGINA PECTORIS
     Dosage: 500 MG, UNK
     Route: 048
     Dates: end: 20161226

REACTIONS (7)
  - Dyspnoea [Not Recovered/Not Resolved]
  - Endothelial dysfunction [Unknown]
  - Angina unstable [Unknown]
  - Fatigue [Not Recovered/Not Resolved]
  - Microvascular coronary artery disease [Unknown]
  - Drug dose omission [Unknown]
  - Chest pain [Not Recovered/Not Resolved]
